FAERS Safety Report 24857468 (Version 4)
Quarter: 2025Q1

REPORT INFORMATION
  Report Type: Report from Study
  Country: JP (occurrence: JP)
  Receive Date: 20250117
  Receipt Date: 20250312
  Transmission Date: 20250409
  Serious: Yes (Other)
  Sender: EISAI
  Company Number: JP-Eisai-202412390_LEQ_P_1

PATIENT
  Age: 89 Year
  Sex: Male
  Weight: 63 kg

DRUGS (12)
  1. LEQEMBI [Suspect]
     Active Substance: LECANEMAB-IRMB
     Indication: Dementia Alzheimer^s type
     Route: 041
     Dates: start: 20240529, end: 20240710
  2. LIVALO [Concomitant]
     Active Substance: PITAVASTATIN CALCIUM
     Route: 048
  3. TELMISARTAN [Concomitant]
     Active Substance: TELMISARTAN
     Route: 048
  4. AZOSEMIDE [Concomitant]
     Active Substance: AZOSEMIDE
     Route: 048
  5. SPIRONOLACTONE [Concomitant]
     Active Substance: SPIRONOLACTONE
     Route: 048
  6. BISOPROLOL FUMARATE [Concomitant]
     Active Substance: BISOPROLOL FUMARATE
     Route: 048
  7. RUPAFIN [Concomitant]
     Active Substance: RUPATADINE FUMARATE
     Route: 048
  8. CALONAL [Concomitant]
     Active Substance: ACETAMINOPHEN
     Route: 048
  9. SHAKUYAKUKANZOTO [Concomitant]
     Active Substance: HERBALS
     Route: 048
  10. MIRABEGRON [Concomitant]
     Active Substance: MIRABEGRON
     Route: 048
  11. SILODOSIN [Concomitant]
     Active Substance: SILODOSIN
     Route: 048
  12. IMIDAFENACIN [Concomitant]
     Active Substance: IMIDAFENACIN
     Route: 048

REACTIONS (1)
  - Embolic cerebral infarction [Unknown]

NARRATIVE: CASE EVENT DATE: 20240716
